FAERS Safety Report 10366418 (Version 1)
Quarter: 2014Q3

REPORT INFORMATION
  Report Type: Report from Study
  Country: MX (occurrence: MX)
  Receive Date: 20140806
  Receipt Date: 20140806
  Transmission Date: 20150326
  Serious: Yes (Hospitalization, Other)
  Sender: FDA-Public Use
  Company Number: PHHY2014MX096444

PATIENT
  Age: 74 Year
  Sex: Male

DRUGS (1)
  1. RASILEZ HCT [Suspect]
     Active Substance: ALISKIREN\HYDROCHLOROTHIAZIDE
     Indication: HYPERTENSION
     Dosage: 0.5 DF (300/12.5 MG)  IN THE MORNING AND 0.5 DF AT NIGHT
     Route: 048

REACTIONS (6)
  - Convulsion [Unknown]
  - Epilepsy [Not Recovered/Not Resolved]
  - Prostatic disorder [Not Recovered/Not Resolved]
  - Cerebral infarction [Unknown]
  - Feeling abnormal [Unknown]
  - Wrong technique in drug usage process [Not Recovered/Not Resolved]
